FAERS Safety Report 8518936 (Version 3)
Quarter: 2012Q4

REPORT INFORMATION
  Report Type: 
  Country: US (occurrence: US)
  Receive Date: 20120418
  Receipt Date: 20121221
  Transmission Date: 20130627
  Serious: Yes (Other)
  Sender: FDA-Public Use
  Company Number: US-PFIZER INC-2012091517

PATIENT
  Age: 46 Year
  Sex: Male

DRUGS (13)
  1. NEURONTIN [Suspect]
     Dosage: 300 mg, 3x/day
  2. NEURONTIN [Suspect]
     Dosage: 600 mg, 3x/day (Take 1 tablet by mouth 3 (three) times daily) (1 PO TID)
     Route: 048
  3. WELCHOL [Concomitant]
     Dosage: 2 tablets by mouth 2 (two) times daily with meals
     Route: 048
  4. CYMBALTA [Concomitant]
     Dosage: 60 mg 1 capsule 2 times daily
     Route: 048
  5. ADVIL [Concomitant]
     Dosage: 800 mg 1 tablet 2 times daily
     Route: 048
  6. MOTRIN [Concomitant]
     Dosage: 800 mg 1 tablet 2 times daily
     Route: 048
  7. ELAVIL [Concomitant]
     Dosage: 50 mg, 1 tablet at night
     Route: 048
  8. ELAVIL [Concomitant]
     Dosage: 100 mg, 1x/day ( 50 mg, Take 2 tablets by mouth nightly)
     Route: 048
  9. CRESTOR [Concomitant]
     Dosage: 40 mg, 1 tablet by mouth nightly
     Route: 048
  10. ULTRAM [Concomitant]
     Dosage: 50 mg 1 tablet 3 times daily
     Route: 048
  11. FIORICET [Concomitant]
     Indication: HEADACHE
     Dosage: 50-325-40 mg, Take 1 tablet by mouth every 6 (six) hours as needed
     Route: 048
  12. ORUDIS [Concomitant]
     Indication: PAIN
     Dosage: 75 mg,  3 times daily as needed
     Route: 048
  13. SEROQUEL [Concomitant]
     Dosage: 50 mg, 1x/day (Take 1 tablet by mouth nightly)
     Route: 048

REACTIONS (9)
  - Bipolar I disorder [Unknown]
  - Blood cholesterol increased [Unknown]
  - Libido decreased [Unknown]
  - Neck pain [Unknown]
  - Back pain [Unknown]
  - Erectile dysfunction [Unknown]
  - Insomnia [Unknown]
  - Headache [Unknown]
  - Essential hypertension [Unknown]
